FAERS Safety Report 6321899-8 (Version None)
Quarter: 2009Q3

REPORT INFORMATION
  Report Type: 
  Country: None (occurrence: None)
  Receive Date: 20090812
  Receipt Date: 20090702
  Transmission Date: 20100115
  Serious: No
  Sender: FDA-Public Use
  Company Number: WAES 0907USA00834

PATIENT

DRUGS (1)
  1. ISENTRESS [Suspect]
     Indication: HIV INFECTION

REACTIONS (1)
  - IMMUNE RECONSTITUTION SYNDROME [None]
